FAERS Safety Report 19177361 (Version 1)
Quarter: 2021Q2

REPORT INFORMATION
  Report Type: Report from Study
  Country: JP (occurrence: JP)
  Receive Date: 20210425
  Receipt Date: 20210425
  Transmission Date: 20210717
  Serious: Yes (Other)
  Sender: FDA-Public Use
  Company Number: JP-UCBSA-2021011842

PATIENT
  Age: 90 Year
  Sex: Female
  Weight: 44.1 kg

DRUGS (10)
  1. TAKEPRON [Concomitant]
     Active Substance: LANSOPRAZOLE
     Indication: PROPHYLAXIS
     Route: 042
     Dates: start: 20210201, end: 20210202
  2. VITAMEDIN INTRAVENOUS [Concomitant]
     Active Substance: CYANOCOBALAMIN\PYRIDOXINE HYDROCHLORIDE\THIAMINE
     Indication: FOCAL DYSCOGNITIVE SEIZURES
     Route: 042
     Dates: start: 20210202, end: 20210204
  3. GRTPA [Concomitant]
     Active Substance: ALTEPLASE
     Indication: FOCAL DYSCOGNITIVE SEIZURES
     Route: 042
     Dates: start: 20210201, end: 20210201
  4. SOLACET D [Concomitant]
     Indication: FOCAL DYSCOGNITIVE SEIZURES
     Route: 042
     Dates: start: 20210202, end: 20210208
  5. SOLACET F [Suspect]
     Active Substance: CALCIUM CHLORIDE\POTASSIUM CHLORIDE\SODIUM ACETATE\SODIUM CHLORIDE
     Indication: FOCAL DYSCOGNITIVE SEIZURES
     Route: 042
     Dates: start: 20210201, end: 20210202
  6. IOPAMIRON [Suspect]
     Active Substance: IOPAMIDOL
     Indication: PRODUCT USED FOR UNKNOWN INDICATION
     Route: 042
     Dates: start: 20210201, end: 20210201
  7. HEPARIN SODIUM. [Concomitant]
     Active Substance: HEPARIN SODIUM
     Indication: FOCAL DYSCOGNITIVE SEIZURES
     Route: 042
     Dates: start: 20210202, end: 20210203
  8. SEISHOKU [Concomitant]
     Active Substance: SODIUM CHLORIDE
     Indication: PROPHYLAXIS
     Route: 042
     Dates: start: 20210201, end: 20210202
  9. LACOSAMIDE. [Suspect]
     Active Substance: LACOSAMIDE
     Indication: FOCAL DYSCOGNITIVE SEIZURES
     Dosage: 50 MILLIGRAM, ONCE DAILY (QD)
     Route: 041
     Dates: start: 20210201, end: 20210202
  10. RADICUT [Concomitant]
     Active Substance: EDARAVONE
     Indication: FOCAL DYSCOGNITIVE SEIZURES
     Route: 042
     Dates: start: 20210201, end: 20210202

REACTIONS (4)
  - Renal impairment [Not Recovered/Not Resolved]
  - Liver disorder [Recovered/Resolved]
  - Hypokalaemia [Recovered/Resolved]
  - Off label use [Unknown]

NARRATIVE: CASE EVENT DATE: 20210201
